FAERS Safety Report 20432937 (Version 2)
Quarter: 2022Q2

REPORT INFORMATION
  Report Type: Spontaneous
  Country: US (occurrence: US)
  Receive Date: 20220205
  Receipt Date: 20220403
  Transmission Date: 20220721
  Serious: No
  Sender: FDA-Public Use
  Company Number: US-SA-SAC20220130000340

PATIENT
  Age: 29 Year
  Sex: Female

DRUGS (1)
  1. DUPIXENT [Suspect]
     Active Substance: DUPILUMAB
     Indication: Eczema
     Dosage: 300 MG, QOW,300MG/2ML
     Route: 058
     Dates: end: 20220223

REACTIONS (3)
  - Injection site pain [Unknown]
  - Keratitis [Unknown]
  - Eye pruritus [Unknown]

NARRATIVE: CASE EVENT DATE: 20211017
